FAERS Safety Report 9157476 (Version 1)
Quarter: 2013Q1

REPORT INFORMATION
  Report Type: Spontaneous
  Country: US (occurrence: US)
  Receive Date: 20130312
  Receipt Date: 20130312
  Transmission Date: 20140127
  Serious: No
  Sender: FDA-Public Use
  Company Number: US-BAYER-2013-029973

PATIENT
  Age: 42 Year
  Sex: Female
  Weight: 97.51 kg

DRUGS (3)
  1. ALEVE CAPLET/TABLET,MIDOL EXTENDED RELIEF CAPLET [Suspect]
     Indication: ANALGESIC THERAPY
     Dosage: 7 DF, UNK
     Route: 048
     Dates: start: 20130305
  2. MULTI-VIT [Concomitant]
  3. COPAXONE [Concomitant]

REACTIONS (2)
  - Overdose [None]
  - Drug ineffective [None]
